FAERS Safety Report 7389361-1 (Version None)
Quarter: 2011Q2

REPORT INFORMATION
  Report Type: 
  Country: None (occurrence: None)
  Receive Date: 20110401
  Receipt Date: 20110324
  Transmission Date: 20111010
  Serious: Yes (Other)
  Sender: FDA-Public Use
  Company Number: B0706849A

PATIENT
  Sex: Female

DRUGS (2)
  1. CEFTAZIDIME [Suspect]
     Indication: URINARY TRACT INFECTION
     Dosage: 2G PER DAY
     Route: 030
     Dates: start: 20110218, end: 20110219
  2. UNKNOWN DRUG [Concomitant]
     Indication: URINARY TRACT INFECTION

REACTIONS (4)
  - SOMNOLENCE [None]
  - LOSS OF CONSCIOUSNESS [None]
  - RASH [None]
  - COGNITIVE DISORDER [None]
